FAERS Safety Report 5133423-6 (Version None)
Quarter: 2006Q4

REPORT INFORMATION
  Report Type: 
  Country: None (occurrence: None)
  Receive Date: 20061017
  Receipt Date: 20061010
  Transmission Date: 20070319
  Serious: Yes (Hospitalization)
  Sender: FDA-Public Use
  Company Number: 06-0096PO FU 1

PATIENT
  Age: 42 Year
  Sex: Male

DRUGS (3)
  1. MEFENAMIC ACID [Suspect]
     Dosage: 3000 MG, PO
     Route: 048
  2. AMLODIPINE [Suspect]
     Dosage: 1000 MG, PO
     Route: 048
  3. CHLOROTHALIDONE (CHLORTALIDONE) [Suspect]
     Dosage: 3000 MG PO
     Route: 048

REACTIONS (10)
  - DRUG TOXICITY [None]
  - HYPOTENSION [None]
  - IATROGENIC INJURY [None]
  - INCORRECT DOSE ADMINISTERED [None]
  - LETHARGY [None]
  - NAUSEA [None]
  - OLIGURIA [None]
  - PULMONARY OEDEMA [None]
  - SUICIDE ATTEMPT [None]
  - VOMITING [None]
